FAERS Safety Report 7458863-1 (Version None)
Quarter: 2011Q2

REPORT INFORMATION
  Report Type: 
  Country: None (occurrence: None)
  Receive Date: 20110504
  Receipt Date: 20100718
  Transmission Date: 20111010
  Serious: No
  Sender: FDA-Public Use
  Company Number: US-SANOFI-AVENTIS-2010SA042432

PATIENT
  Age: 37 Year
  Sex: Female

DRUGS (2)
  1. APIDRA [Suspect]
     Dosage: DOSE:18 UNIT(S)
     Route: 058
     Dates: start: 20100401
  2. LANTUS [Suspect]
     Dates: start: 20100401

REACTIONS (2)
  - WRONG DRUG ADMINISTERED [None]
  - DYSGEUSIA [None]
